FAERS Safety Report 12459601 (Version 1)
Quarter: 2016Q2

REPORT INFORMATION
  Report Type: Spontaneous
  Country: US (occurrence: None)
  Receive Date: 20160610
  Receipt Date: 20160610
  Transmission Date: 20160815
  Serious: No
  Sender: FDA-Public Use
  Company Number: None

PATIENT
  Age: 51 Year
  Sex: Female

DRUGS (1)
  1. ALECENSA [Suspect]
     Active Substance: ALECTINIB HYDROCHLORIDE
     Indication: NEOPLASM MALIGNANT
     Dosage: ALECENSA 150MG 3BID ORAL
     Route: 048
     Dates: start: 20160601

REACTIONS (2)
  - Hepatotoxicity [None]
  - Abdominal pain upper [None]

NARRATIVE: CASE EVENT DATE: 20150609
